FAERS Safety Report 5897996-8 (Version None)
Quarter: 2008Q3

REPORT INFORMATION
  Report Type: 
  Country: None (occurrence: None)
  Receive Date: 20080917
  Receipt Date: 20071124
  Transmission Date: 20090109
  Serious: Yes (Other)
  Sender: FDA-Public Use
  Company Number: PHEH2007US15237

PATIENT
  Sex: Female

DRUGS (3)
  1. FEMARA [Suspect]
  2. FOSAMAX [Concomitant]
  3. ZOMETA [Concomitant]

REACTIONS (5)
  - BONE SCAN ABNORMAL [None]
  - CONDITION AGGRAVATED [None]
  - MUSCULOSKELETAL CHEST PAIN [None]
  - OSTEOPOROSIS [None]
  - RIB FRACTURE [None]
